FAERS Safety Report 6529217-7 (Version None)
Quarter: 2010Q1

REPORT INFORMATION
  Report Type: 
  Country: None (occurrence: None)
  Receive Date: 20100107
  Receipt Date: 20100104
  Transmission Date: 20100710
  Serious: Yes (Hospitalization, Other)
  Sender: FDA-Public Use
  Company Number: US-ROCHE-636890

PATIENT
  Sex: Female

DRUGS (2)
  1. PEG-INTERFERON A-2A (RO 25-8310) [Suspect]
     Indication: HEPATITIS C
     Dosage: FORM: PRE-FILLED SYRINGE; WEEK 31
     Route: 065
     Dates: start: 20090306
  2. COPEGUS [Suspect]
     Indication: HEPATITIS C
     Dosage: DIVIDED DOSES; WEEK 31
     Route: 048
     Dates: start: 20090306

REACTIONS (9)
  - ANAEMIA [None]
  - ARTHROPOD BITE [None]
  - FATIGUE [None]
  - GALLBLADDER NON-FUNCTIONING [None]
  - HYPERTENSION [None]
  - NAUSEA [None]
  - UTERINE LEIOMYOMA [None]
  - WHITE BLOOD CELL COUNT DECREASED [None]
  - WOUND INFECTION [None]
